FAERS Safety Report 6572227-4 (Version None)
Quarter: 2010Q1

REPORT INFORMATION
  Report Type: 
  Country: None (occurrence: None)
  Receive Date: 20100205
  Receipt Date: 20100128
  Transmission Date: 20100710
  Serious: Yes (Other)
  Sender: FDA-Public Use
  Company Number: PHHY2009RU59551

PATIENT
  Age: 62 Year
  Sex: Female

DRUGS (2)
  1. MIACALCIN [Suspect]
     Indication: OSTEOPOROSIS
     Dosage: UNK
     Route: 045
     Dates: start: 20090901
  2. PARIET [Concomitant]
     Dosage: UNK

REACTIONS (4)
  - ABDOMINAL PAIN UPPER [None]
  - CONCOMITANT DISEASE AGGRAVATED [None]
  - DYSGEUSIA [None]
  - GASTRITIS EROSIVE [None]
